FAERS Safety Report 15368238 (Version 1)
Quarter: 2018Q3

REPORT INFORMATION
  Report Type: Spontaneous
  Country: BR (occurrence: BR)
  Receive Date: 20180910
  Receipt Date: 20180910
  Transmission Date: 20181010
  Serious: Yes (Other)
  Sender: FDA-Public Use
  Company Number: BR-PFIZER INC-2018349632

PATIENT
  Age: 74 Year
  Sex: Female

DRUGS (8)
  1. FRONTAL XR [Suspect]
     Active Substance: ALPRAZOLAM
     Indication: DEPRESSION
     Dosage: 0.5 MG, 1X/DAY
     Dates: start: 2016
  2. ALDACTONE A [Concomitant]
     Active Substance: SPIRONOLACTONE
     Dosage: UNK
     Dates: start: 2014
  3. VERAPAMIL HYDROCHLORIDE. [Concomitant]
     Active Substance: VERAPAMIL HYDROCHLORIDE
     Dosage: UNK
     Dates: start: 2016
  4. XARELTO [Concomitant]
     Active Substance: RIVAROXABAN
     Dosage: UNK
     Dates: start: 2014
  5. LYRICA [Concomitant]
     Active Substance: PREGABALIN
     Dosage: UNK
     Dates: start: 2015
  6. ATLANSIL [AMIODARONE] [Concomitant]
     Dosage: UNK
     Dates: start: 2017
  7. LASIX [Concomitant]
     Active Substance: FUROSEMIDE
     Dosage: UNK
     Dates: start: 2017
  8. REUQUINOL [Concomitant]
     Active Substance: HYDROXYCHLOROQUINE SULFATE
     Dosage: UNK
     Dates: start: 2018

REACTIONS (9)
  - Arrhythmia [Recovered/Resolved]
  - Drug dose omission [Recovered/Resolved]
  - Apathy [Recovered/Resolved]
  - Aggression [Recovered/Resolved]
  - Cerebral infarction [Recovered/Resolved]
  - Gait inability [Recovered/Resolved]
  - Speech disorder [Recovered/Resolved]
  - Appetite disorder [Recovered/Resolved]
  - Disease recurrence [Recovered/Resolved]

NARRATIVE: CASE EVENT DATE: 2016
